FAERS Safety Report 6073230-3 (Version None)
Quarter: 2009Q1

REPORT INFORMATION
  Report Type: 
  Country: None (occurrence: None)
  Receive Date: 20090211
  Receipt Date: 20081114
  Transmission Date: 20090719
  Serious: No
  Sender: FDA-Public Use
  Company Number: A0756466A

PATIENT
  Sex: Male

DRUGS (1)
  1. ALTABAX [Suspect]
     Indication: LACERATION
     Dosage: 1APP UNKNOWN
     Route: 061
     Dates: start: 20081101, end: 20081101

REACTIONS (1)
  - APPLICATION SITE IRRITATION [None]
